FAERS Safety Report 20584931 (Version 5)
Quarter: 2022Q3

REPORT INFORMATION
  Report Type: Report from Study
  Country: US (occurrence: US)
  Receive Date: 20220311
  Receipt Date: 20220718
  Transmission Date: 20221027
  Serious: Yes (Hospitalization)
  Sender: FDA-Public Use
  Company Number: US-NOVARTISTESTPH-NVSC2022US056695

PATIENT
  Sex: Female

DRUGS (1)
  1. COSENTYX [Suspect]
     Active Substance: SECUKINUMAB
     Indication: Axial spondyloarthritis
     Dosage: UNK
     Route: 058

REACTIONS (9)
  - Illness [Unknown]
  - Decreased immune responsiveness [Unknown]
  - Viral infection [Unknown]
  - Vomiting [Unknown]
  - Movement disorder [Unknown]
  - Pain in extremity [Unknown]
  - Nausea [Unknown]
  - Back pain [Unknown]
  - Drug ineffective [Unknown]
